FAERS Safety Report 11852192 (Version 1)
Quarter: 2015Q4

REPORT INFORMATION
  Report Type: Spontaneous
  Country: US (occurrence: US)
  Receive Date: 20151218
  Receipt Date: 20151218
  Transmission Date: 20160305
  Serious: No
  Sender: FDA-Public Use
  Company Number: US-GILEAD-2015-0188922

PATIENT
  Age: 60 Year
  Sex: Female

DRUGS (1)
  1. SOVALDI [Suspect]
     Active Substance: SOFOSBUVIR
     Indication: PRODUCT USED FOR UNKNOWN INDICATION
     Route: 065

REACTIONS (10)
  - Tremor [Unknown]
  - Nervousness [Unknown]
  - Depression [Unknown]
  - Fatigue [Unknown]
  - Anxiety [Unknown]
  - Insomnia [Unknown]
  - Increased appetite [Unknown]
  - Back pain [Unknown]
  - Weight increased [Unknown]
  - Headache [Unknown]
